FAERS Safety Report 7021700-3 (Version None)
Quarter: 2010Q3

REPORT INFORMATION
  Report Type: 
  Country: None (occurrence: None)
  Receive Date: 20100930
  Receipt Date: 20100922
  Transmission Date: 20110219
  Serious: Yes (Other)
  Sender: FDA-Public Use
  Company Number: US-BIOGENIDEC-2010BI022309

PATIENT
  Age: 54 Year
  Sex: Male
  Weight: 58 kg

DRUGS (1)
  1. TYSABRI [Suspect]
     Indication: MULTIPLE SCLEROSIS
     Route: 042
     Dates: start: 20070820, end: 20100702

REACTIONS (4)
  - CHRONIC MYELOID LEUKAEMIA [None]
  - DIARRHOEA [None]
  - PAIN IN EXTREMITY [None]
  - WEIGHT DECREASED [None]
